FAERS Safety Report 7629940-7 (Version None)
Quarter: 2011Q3

REPORT INFORMATION
  Report Type: 
  Country: None (occurrence: None)
  Receive Date: 20110715
  Receipt Date: 20110708
  Transmission Date: 20111222
  Serious: Yes (Other)
  Sender: FDA-Public Use
  Company Number: 2011SP031840

PATIENT
  Age: 19 Year
  Sex: Female

DRUGS (1)
  1. MOMETASONE FUROATE [Suspect]
     Indication: PRODUCT USED FOR UNKNOWN INDICATION
     Dosage: TOP
     Route: 061

REACTIONS (1)
  - URTICARIA [None]
